FAERS Safety Report 15003204 (Version 2)
Quarter: 2018Q2

REPORT INFORMATION
  Report Type: Spontaneous
  Country: US (occurrence: US)
  Receive Date: 20180613
  Receipt Date: 20180626
  Transmission Date: 20180711
  Serious: Yes (Disabling)
  Sender: FDA-Public Use
  Company Number: US-GLENMARK PHARMACEUTICALS-2018GMK035896

PATIENT

DRUGS (24)
  1. GABAPENTIN. [Concomitant]
     Active Substance: GABAPENTIN
     Indication: PAIN IN EXTREMITY
     Dosage: 600 MG, UNK
     Route: 065
  2. PLAQUENIL                          /00072602/ [Concomitant]
     Active Substance: HYDROXYCHLOROQUINE DIPHOSPHATE
     Indication: SJOGREN^S SYNDROME
     Dosage: 200 MG, UNK
     Route: 065
  3. OMEPRAZOLE. [Concomitant]
     Active Substance: OMEPRAZOLE
     Indication: ABDOMINAL PAIN
     Dosage: 20 MG, UNK
     Route: 065
  4. PILOCARPINE. [Concomitant]
     Active Substance: PILOCARPINE
     Indication: SJOGREN^S SYNDROME
  5. RESTASIS [Concomitant]
     Active Substance: CYCLOSPORINE
     Indication: DRY EYE
     Dosage: 2 UNK, UNK
     Route: 047
  6. MULTIVITAMINS [Concomitant]
     Active Substance: VITAMINS
     Indication: SUPPLEMENTATION THERAPY
     Dosage: 1 DF, OD
     Route: 065
  7. VITAMIN B COMPLEX [Concomitant]
     Active Substance: CYANOCOBALAMIN\DEXPANTHENOL\NIACINAMIDE\PYRIDOXINE HYDROCHLORIDE\RIBOFLAVIN 5^-PHOSPHATE SODIUM\THIAMINE HYDROCHLORIDE\VITAMIN B COMPLEX
     Indication: HYPOVITAMINOSIS
     Dosage: 1 DF, UNK
     Route: 065
  8. CALCIUM CITRATE [Concomitant]
     Active Substance: CALCIUM CITRATE
     Indication: BONE LOSS
     Dosage: 315 MG-250 IU 4 TIMES A DAY
     Route: 065
  9. MAGNESIUM [Concomitant]
     Active Substance: MAGNESIUM
     Indication: STRESS
     Dosage: 250 MG, UNK
     Route: 065
  10. PRAMIPEXOLE DIHYDROCHLORIDE. [Suspect]
     Active Substance: PRAMIPEXOLE DIHYDROCHLORIDE
     Indication: RESTLESS LEGS SYNDROME
     Dosage: 0.5 DF, QID
     Route: 048
  11. CLONAZEPAM. [Concomitant]
     Active Substance: CLONAZEPAM
     Indication: ANXIETY
     Dosage: 0.25 MG, HS
     Route: 065
  12. FLAXSEED [Concomitant]
     Active Substance: FLAX SEED
     Indication: DRY EYE
     Dosage: 1000 MG, UNK
     Route: 065
  13. FLAXSEED [Concomitant]
     Active Substance: FLAX SEED
     Indication: DRY MOUTH
  14. VENLAFAXINE [Concomitant]
     Active Substance: VENLAFAXINE HYDROCHLORIDE
     Indication: ANXIETY
     Dosage: 75 MG, UNK
     Route: 065
  15. LIPITOR [Concomitant]
     Active Substance: ATORVASTATIN CALCIUM
     Indication: BLOOD CHOLESTEROL ABNORMAL
     Dosage: 5 MG EVERY OTHER DAY
     Route: 065
  16. OXYCODONE [Concomitant]
     Active Substance: OXYCODONE
     Indication: SPINAL FRACTURE
  17. ASPIRIN                            /00002701/ [Concomitant]
     Active Substance: ASPIRIN
     Indication: THROMBOSIS
     Dosage: 81 MG, OD
     Route: 065
  18. PILOCARPINE. [Concomitant]
     Active Substance: PILOCARPINE
     Indication: DRY MOUTH
     Dosage: 5 MG, UNK
     Route: 065
  19. VENLAFAXINE [Concomitant]
     Active Substance: VENLAFAXINE HYDROCHLORIDE
     Indication: DEPRESSION
  20. GABAPENTIN. [Concomitant]
     Active Substance: GABAPENTIN
     Indication: RESTLESS LEGS SYNDROME
  21. MAGNESIUM [Concomitant]
     Active Substance: MAGNESIUM
     Indication: RESTLESS LEGS SYNDROME
  22. MELATONIN [Concomitant]
     Active Substance: MELATONIN
     Indication: SLEEP DISORDER
     Dosage: 3 MG, UNK
     Route: 065
  23. VITAMIN D2 [Concomitant]
     Active Substance: ERGOCALCIFEROL
     Indication: VITAMIN D DEFICIENCY
     Dosage: 50000 UNITS
     Route: 065
  24. OXYCODONE [Concomitant]
     Active Substance: OXYCODONE
     Indication: BACK PAIN
     Dosage: UNK
     Route: 065

REACTIONS (3)
  - Actinic keratosis [Recovering/Resolving]
  - Malignant melanoma [Recovered/Resolved with Sequelae]
  - Product use in unapproved indication [Unknown]

NARRATIVE: CASE EVENT DATE: 201601
